FAERS Safety Report 15544164 (Version 1)
Quarter: 2018Q4

REPORT INFORMATION
  Report Type: Spontaneous
  Country: US (occurrence: US)
  Receive Date: 20181024
  Receipt Date: 20181024
  Transmission Date: 20190205
  Serious: No
  Sender: FDA-Public Use
  Company Number: US-AUROBINDO-AUR-APU-2018-043624

PATIENT
  Age: 80 Year
  Sex: Female

DRUGS (1)
  1. CARVEDILOL TABLETS 12.5 MG [Suspect]
     Active Substance: CARVEDILOL
     Indication: BLOOD PRESSURE MEASUREMENT
     Dosage: 2 DOSAGE FORM, TWO TIMES A DAY
     Route: 065
     Dates: start: 201804

REACTIONS (2)
  - Drug ineffective [Unknown]
  - Product residue present [Unknown]

NARRATIVE: CASE EVENT DATE: 20180823
